FAERS Safety Report 16919369 (Version 4)
Quarter: 2019Q4

REPORT INFORMATION
  Report Type: Report from Study
  Country: RU (occurrence: RU)
  Receive Date: 20191015
  Receipt Date: 20191104
  Transmission Date: 20200122
  Serious: Yes (Other)
  Sender: FDA-Public Use
  Company Number: RU-PFIZER INC-2019444635

PATIENT
  Age: 52 Year
  Sex: Male
  Weight: 85 kg

DRUGS (8)
  1. LORISTA [Concomitant]
     Active Substance: LOSARTAN POTASSIUM
     Dosage: UNK UNK, UNK
     Route: 065
  2. BRILINTA [Suspect]
     Active Substance: TICAGRELOR
     Dosage: 90 MG, BID
     Route: 048
     Dates: start: 201906
  3. BRILINTA [Suspect]
     Active Substance: TICAGRELOR
     Indication: MYOCARDIAL INFARCTION
     Dosage: 90 MG, BID
     Route: 048
     Dates: start: 201610, end: 201902
  4. BISOPROLOL [Concomitant]
     Active Substance: BISOPROLOL
     Dosage: UNK UNK, UNK
     Route: 065
  5. ACECARDOL [Concomitant]
     Active Substance: ASPIRIN
     Dosage: UNK UNK, UNK
     Route: 065
  6. LIPRIMAR [Concomitant]
     Active Substance: ATORVASTATIN CALCIUM
     Dosage: UNK UNK, UNK
     Route: 065
  7. RAMIPRIL. [Suspect]
     Active Substance: RAMIPRIL
     Dosage: UNK, UNK
     Route: 048
     Dates: start: 201908
  8. BRILINTA [Suspect]
     Active Substance: TICAGRELOR
     Dosage: 60 MG, UNK
     Route: 048
     Dates: start: 201902, end: 201906

REACTIONS (5)
  - Cough [Unknown]
  - Gingival disorder [Unknown]
  - Off label use [Unknown]
  - Haemorrhage [Recovered/Resolved]
  - Intentional device use issue [Recovered/Resolved]

NARRATIVE: CASE EVENT DATE: 201610
